FAERS Safety Report 7814102-0 (Version None)
Quarter: 2011Q4

REPORT INFORMATION
  Report Type: 
  Country: None (occurrence: None)
  Receive Date: 20111011
  Receipt Date: 20110923
  Transmission Date: 20120403
  Serious: Yes (Other)
  Sender: FDA-Public Use
  Company Number: 2011P1009061

PATIENT
  Age: 69 Year
  Sex: Female
  Weight: 66.6788 kg

DRUGS (15)
  1. LANOXIN [Concomitant]
  2. WARFARIN SODIUM [Suspect]
     Indication: ATRIAL FIBRILLATION
     Dosage: 5 MG;QD;PO
     Route: 048
     Dates: start: 20070101
  3. PROPRANOLOL [Suspect]
  4. VITAMIN D [Concomitant]
  5. SYNTHROID [Suspect]
  6. ESTROGEN CREAM [Concomitant]
  7. DIGOXIN [Suspect]
  8. ATENOLOL [Concomitant]
  9. METHYFOLATE [Concomitant]
  10. THYROID TAB [Concomitant]
  11. TRIAMTERENE AND HYDROCHLOROTHIAZIDE [Suspect]
     Indication: FLUID RETENTION
     Dosage: 37.5 MG
     Dates: start: 20060101
  12. ROUND-UP (NO PREF. NAME) [Suspect]
  13. VITAMIN B COMPLEX CAP [Concomitant]
  14. MAGNESIUM [Concomitant]
  15. LORATADINE [Concomitant]

REACTIONS (10)
  - AMNESIA [None]
  - PRODUCT MEASURED POTENCY ISSUE [None]
  - ARRHYTHMIA [None]
  - SINUS HEADACHE [None]
  - PARAESTHESIA [None]
  - HEADACHE [None]
  - ALOPECIA [None]
  - UNEVALUABLE EVENT [None]
  - HYPERSOMNIA [None]
  - GENERALISED OEDEMA [None]
